FAERS Safety Report 10062700 (Version 1)
Quarter: 2014Q2

REPORT INFORMATION
  Report Type: Spontaneous
  Country: US (occurrence: US)
  Receive Date: 20140407
  Receipt Date: 20140407
  Transmission Date: 20141212
  Serious: Yes (Other)
  Sender: FDA-Public Use
  Company Number: US-GLAXOSMITHKLINE-A1067297A

PATIENT
  Age: 67 Year
  Sex: Female

DRUGS (7)
  1. VALACICLOVIR HYDROCHLORIDE [Suspect]
     Indication: ORAL HERPES
     Dosage: 500MG PER DAY
     Route: 048
     Dates: start: 20140210
  2. VENTOLIN [Suspect]
     Indication: RESPIRATORY TRACT INFECTION
     Dosage: 2PUFF SIX TIMES PER DAY
     Route: 055
     Dates: start: 20140318, end: 20140325
  3. PREDNISONE [Concomitant]
  4. SYNTHROID [Concomitant]
  5. LIPITOR [Concomitant]
  6. VALACYCLOVIR [Concomitant]
  7. COUGH MEDICINE [Concomitant]

REACTIONS (9)
  - Respiratory tract infection [Unknown]
  - Nasopharyngitis [Unknown]
  - Dizziness [Recovered/Resolved]
  - Dizziness [Recovered/Resolved]
  - Malaise [Unknown]
  - Cough [Unknown]
  - Asthenia [Recovered/Resolved]
  - Feeling abnormal [Recovered/Resolved]
  - Drug ineffective [Unknown]
